FAERS Safety Report 11317546 (Version 1)
Quarter: 2015Q3

REPORT INFORMATION
  Report Type: Spontaneous
  Country: US (occurrence: None)
  Receive Date: 20150727
  Receipt Date: 20150727
  Transmission Date: 20151125
  Serious: Yes (Hospitalization)
  Sender: FDA-Public Use
  Company Number: None

PATIENT
  Age: 62 Year
  Sex: Male
  Weight: 109 kg

DRUGS (1)
  1. HARVONI [Suspect]
     Active Substance: LEDIPASVIR\SOFOSBUVIR
     Indication: HEPATITIS C
     Route: 048
     Dates: start: 20150204, end: 20150505

REACTIONS (5)
  - Eyelid ptosis [None]
  - Diplopia [None]
  - Asthenia [None]
  - Muscular weakness [None]
  - Dysphagia [None]

NARRATIVE: CASE EVENT DATE: 20150522
